FAERS Safety Report 17385405 (Version 1)
Quarter: 2020Q1

REPORT INFORMATION
  Report Type: Spontaneous
  Country: US (occurrence: US)
  Receive Date: 20200206
  Receipt Date: 20200206
  Transmission Date: 20200409
  Serious: No
  Sender: FDA-Public Use
  Company Number: US-ABBVIE-19K-163-2909154-00

PATIENT
  Age: 35 Year
  Sex: Female
  Weight: 108.96 kg

DRUGS (8)
  1. WELLBUTRIN [Concomitant]
     Active Substance: BUPROPION HYDROCHLORIDE
     Indication: DEPRESSION
  2. WELLBUTRIN [Concomitant]
     Active Substance: BUPROPION HYDROCHLORIDE
     Indication: ANXIETY
  3. HUMIRA [Suspect]
     Active Substance: ADALIMUMAB
     Indication: HIDRADENITIS
     Route: 058
     Dates: start: 20190504, end: 20190518
  4. HUMIRA [Suspect]
     Active Substance: ADALIMUMAB
     Route: 058
     Dates: start: 20190601
  5. ROBAXIN [Concomitant]
     Active Substance: METHOCARBAMOL
     Indication: BACK PAIN
  6. MOTRIN [Concomitant]
     Active Substance: IBUPROFEN
     Indication: BACK PAIN
  7. GABAPENTIN. [Concomitant]
     Active Substance: GABAPENTIN
     Indication: PAIN
  8. DOXYCYCLINE. [Concomitant]
     Active Substance: DOXYCYCLINE
     Indication: HIDRADENITIS

REACTIONS (2)
  - Injection site haemorrhage [Recovered/Resolved]
  - Wrong technique in product usage process [Recovered/Resolved]

NARRATIVE: CASE EVENT DATE: 2019
